FAERS Safety Report 5760088-2 (Version None)
Quarter: 2008Q2

REPORT INFORMATION
  Report Type: 
  Country: None (occurrence: None)
  Receive Date: 20080605
  Receipt Date: 20080530
  Transmission Date: 20081010
  Serious: Yes (Other)
  Sender: FDA-Public Use
  Company Number: IT-ABBOTT-08P-083-0452716-00

PATIENT
  Sex: Female

DRUGS (4)
  1. DEPAKOTE [Suspect]
     Indication: CEREBROVASCULAR ACCIDENT
     Route: 048
     Dates: start: 20080317, end: 20080402
  2. ESOMEPRAZOLE [Concomitant]
     Indication: DRUG USE FOR UNKNOWN INDICATION
     Route: 048
  3. CLOPIDOGREL BISULFATE [Concomitant]
     Indication: DRUG USE FOR UNKNOWN INDICATION
     Dosage: 75 MG DAILY
     Route: 048
  4. METOPROLOL TARTRATE [Concomitant]
     Indication: DRUG USE FOR UNKNOWN INDICATION
     Dosage: 25 MG DAILY
     Route: 048

REACTIONS (3)
  - POLYDIPSIA [None]
  - SPECIFIC GRAVITY URINE DECREASED [None]
  - TUBULOINTERSTITIAL NEPHRITIS [None]
